FAERS Safety Report 9930591 (Version 1)
Quarter: 2014Q1

REPORT INFORMATION
  Report Type: Spontaneous
  Country: US (occurrence: US)
  Receive Date: 20140227
  Receipt Date: 20140227
  Transmission Date: 20141002
  Serious: No
  Sender: FDA-Public Use
  Company Number: US-AMGEN-USASP2013090601

PATIENT
  Age: 60 Year
  Sex: Male
  Weight: 72.56 kg

DRUGS (6)
  1. ENBREL [Suspect]
     Indication: RHEUMATOID ARTHRITIS
     Dosage: 50 MG, QWK
     Route: 058
  2. ULTRAM ER [Concomitant]
     Dosage: 100 MG, UNK
  3. PREDNISONE [Concomitant]
     Dosage: 10 MG, UNK
  4. VITAMIN D                          /00107901/ [Concomitant]
     Dosage: 1000 UNIT, UNK
  5. CALCIUM [Concomitant]
     Dosage: UNK
  6. VITAMIN B12                        /00056201/ [Concomitant]
     Dosage: 1000 MUG, UNK

REACTIONS (3)
  - Immune system disorder [Unknown]
  - Nasopharyngitis [Recovered/Resolved]
  - Influenza [Unknown]
